FAERS Safety Report 9962328 (Version 1)
Quarter: 2014Q1

REPORT INFORMATION
  Report Type: Report from Study
  Country: US (occurrence: US)
  Receive Date: 20140305
  Receipt Date: 20140305
  Transmission Date: 20141002
  Serious: Yes (Other)
  Sender: FDA-Public Use
  Company Number: US-ABBVIE-13P-163-1116146-00

PATIENT
  Age: 59 Year
  Sex: Female

DRUGS (3)
  1. HUMIRA [Suspect]
     Indication: CROHN^S DISEASE
     Dosage: ONE DOSE
     Dates: start: 20130412, end: 20130412
  2. HUMIRA [Suspect]
     Dosage: ONE DOSE
     Dates: start: 20130426, end: 20130426
  3. HUMIRA [Suspect]
     Dates: start: 20130510

REACTIONS (4)
  - Red blood cell count decreased [Unknown]
  - Gastrointestinal bacterial infection [Not Recovered/Not Resolved]
  - Diarrhoea [Not Recovered/Not Resolved]
  - White blood cell count increased [Unknown]
